FAERS Safety Report 9702749 (Version 2)
Quarter: 2013Q4

REPORT INFORMATION
  Report Type: Spontaneous
  Country: DE (occurrence: None)
  Receive Date: 20131120
  Receipt Date: 20131204
  Transmission Date: 20140711
  Serious: Yes (Hospitalization)
  Sender: FDA-Public Use
  Company Number: SYM-2013-12774

PATIENT
  Age: 75 Year
  Sex: Male

DRUGS (9)
  1. 5 FU [Suspect]
     Indication: COLORECTAL CANCER METASTATIC
     Route: 040
     Dates: start: 20130930, end: 20130930
  2. IRINOTECAN [Suspect]
     Indication: COLORECTAL CANCER METASTATIC
     Route: 041
     Dates: start: 20130930, end: 20130930
  3. LEUCOVORIN [Suspect]
     Indication: COLORECTAL CANCER METASTATIC
     Route: 041
     Dates: start: 20130930, end: 20130930
  4. AFLIBERCEPT [Suspect]
     Indication: COLORECTAL CANCER METASTATIC
     Route: 041
     Dates: start: 20130930, end: 20130930
  5. PROTON PUMP INHIBITORS(PROTON PUMP INHIBHITORS) [Concomitant]
  6. LOPERAMIDE(LOPERAMIDE)(LOPERAMIDE) [Concomitant]
  7. BELLADONNA [Concomitant]
  8. CORTICOSTEROIDS(CORTISCOSTEROIDS) [Concomitant]
  9. SEROTONIN ANTAGONISTS (SEROTONIN ANTAGONISTS) [Concomitant]

REACTIONS (1)
  - Hypertension [None]
